FAERS Safety Report 6876073-3 (Version None)
Quarter: 2010Q3

REPORT INFORMATION
  Report Type: 
  Country: None (occurrence: None)
  Receive Date: 20100723
  Receipt Date: 20100708
  Transmission Date: 20110219
  Serious: Yes (Other)
  Sender: FDA-Public Use
  Company Number: 1000015147

PATIENT
  Sex: Male

DRUGS (4)
  1. ESCITALOPRAM [Suspect]
     Dosage: 5 MG (5 MG, 1 IN 1 D), ORAL
     Route: 048
  2. AMIODARONE HCL [Concomitant]
  3. AVAPRO [Concomitant]
  4. AMLODIPINE [Concomitant]

REACTIONS (1)
  - LOSS OF CONSCIOUSNESS [None]
